FAERS Safety Report 19958496 (Version 2)
Quarter: 2021Q4

REPORT INFORMATION
  Report Type: Report from Study
  Country: US (occurrence: US)
  Receive Date: 20211015
  Receipt Date: 20211116
  Transmission Date: 20220304
  Serious: Yes (Hospitalization, Other)
  Sender: FDA-Public Use
  Company Number: US-SANOFI-00653569

PATIENT
  Age: 72 Year
  Sex: Female

DRUGS (6)
  1. DUPILUMAB [Suspect]
     Active Substance: DUPILUMAB
     Indication: Asthma
     Dosage: 400 MG, 1X
     Route: 058
     Dates: start: 20201103, end: 20201103
  2. DUPILUMAB [Suspect]
     Active Substance: DUPILUMAB
     Indication: Asthma
     Dosage: 200 MG, QOW
     Route: 058
     Dates: start: 20201117, end: 202104
  3. DUPILUMAB [Suspect]
     Active Substance: DUPILUMAB
     Dosage: 200 MG, QOW
     Route: 058
     Dates: start: 202105, end: 202107
  4. DUPILUMAB [Suspect]
     Active Substance: DUPILUMAB
     Dosage: 300 MG, QOW
     Route: 058
     Dates: start: 20210827
  5. DUPILUMAB [Suspect]
     Active Substance: DUPILUMAB
     Dosage: UNK
     Dates: end: 20211007
  6. PREDNISONE [Suspect]
     Active Substance: PREDNISONE
     Indication: Pneumonitis

REACTIONS (11)
  - Hiatus hernia [Unknown]
  - Cardiac disorder [Unknown]
  - Lung disorder [Unknown]
  - Spinal fracture [Unknown]
  - Spinal pain [Unknown]
  - Sepsis [Unknown]
  - Pneumonitis [Unknown]
  - Dysphonia [Unknown]
  - Asthenia [Unknown]
  - Fracture [Unknown]
  - Product use issue [Unknown]

NARRATIVE: CASE EVENT DATE: 20210101
